FAERS Safety Report 19492724 (Version 1)
Quarter: 2021Q3

REPORT INFORMATION
  Report Type: Report from Study
  Country: US (occurrence: US)
  Receive Date: 20210705
  Receipt Date: 20210705
  Transmission Date: 20211014
  Serious: Yes (Other)
  Sender: FDA-Public Use
  Company Number: US-BIOVITRUM-2021US6596

PATIENT
  Sex: Female

DRUGS (1)
  1. KINERET [Suspect]
     Active Substance: ANAKINRA
     Indication: RHEUMATOID ARTHRITIS
     Route: 058
     Dates: start: 20210616

REACTIONS (5)
  - Arthralgia [Unknown]
  - Pulmonary congestion [Unknown]
  - Head discomfort [Unknown]
  - Oedema peripheral [Unknown]
  - Productive cough [Unknown]
